FAERS Safety Report 7996188-6 (Version None)
Quarter: 2011Q4

REPORT INFORMATION
  Report Type: 
  Country: None (occurrence: None)
  Receive Date: 20111220
  Receipt Date: 20111216
  Transmission Date: 20120403
  Serious: Yes (Death)
  Sender: FDA-Public Use
  Company Number: PHEH2011US011970

PATIENT
  Sex: Female

DRUGS (10)
  1. MULTI-VITAMIN [Concomitant]
     Dosage: UNK UKN, UNK
  2. TASIGNA [Suspect]
     Dosage: UNK UKN, UNK
  3. KEPPRA [Concomitant]
     Dosage: 1000 MG, DAILY
  4. ZOFRAN [Concomitant]
     Dosage: 4 MG, DAILY
  5. ZANTAC [Concomitant]
     Dosage: UNK UKN, UNK
  6. VORICONAZOLE [Concomitant]
     Dosage: 200 MG, DAILY
  7. BACTRIM [Concomitant]
     Dosage: UNK UKN, UNK
  8. GLEEVEC [Suspect]
     Dosage: 600 MG PER DAY
  9. REMERON [Concomitant]
     Dosage: 15 MG, DAILY
  10. SYNTHROID [Concomitant]
     Dosage: 150 UG, DAILY

REACTIONS (1)
  - DEATH [None]
